FAERS Safety Report 21105976 (Version 3)
Quarter: 2022Q3

REPORT INFORMATION
  Report Type: Report from Study
  Country: US (occurrence: None)
  Receive Date: 20220720
  Receipt Date: 20220728
  Transmission Date: 20221026
  Serious: Yes (Death, Hospitalization)
  Sender: FDA-Public Use
  Company Number: 2022A258384

PATIENT
  Age: 28055 Day
  Sex: Male

DRUGS (1)
  1. TAGRISSO [Suspect]
     Active Substance: OSIMERTINIB
     Indication: Metastases to lung
     Route: 048
     Dates: start: 20220531, end: 20220710

REACTIONS (1)
  - Infection [Fatal]

NARRATIVE: CASE EVENT DATE: 20220710
